FAERS Safety Report 8508038-X (Version None)
Quarter: 2012Q3

REPORT INFORMATION
  Report Type: 
  Country: None (occurrence: None)
  Receive Date: 20120713
  Receipt Date: 20120709
  Transmission Date: 20120928
  Serious: Yes (Hospitalization)
  Sender: FDA-Public Use
  Company Number: PHHY2011IT56684

PATIENT
  Sex: Female

DRUGS (3)
  1. VIMPAT [Suspect]
     Dosage: 150 MG, (50 PLUS 100 MG)
     Route: 048
  2. TEGRETOL [Suspect]
     Indication: COMPLEX PARTIAL SEIZURES
     Dosage: 600 MG, DAILY
     Route: 048
     Dates: start: 20110501
  3. VIMPAT [Suspect]
     Dosage: 200 MG, UNK
     Route: 048
     Dates: start: 20110501

REACTIONS (4)
  - ASTHENIA [None]
  - VERTIGO [None]
  - DECREASED APPETITE [None]
  - NAUSEA [None]
